FAERS Safety Report 18064847 (Version 1)
Quarter: 2020Q3

REPORT INFORMATION
  Report Type: Spontaneous
  Country: US (occurrence: US)
  Receive Date: 20200724
  Receipt Date: 20200724
  Transmission Date: 20201103
  Serious: No
  Sender: FDA-Public Use
  Company Number: US-HIKMA PHARMACEUTICALS USA INC.-US-H14001-19-05243

PATIENT
  Age: 34 Year
  Sex: Female
  Weight: 80.74 kg

DRUGS (5)
  1. FENTANYL. [Suspect]
     Active Substance: FENTANYL
     Indication: LABOUR PAIN
     Route: 008
     Dates: start: 20190919
  2. FENTANYL. [Suspect]
     Active Substance: FENTANYL
     Dosage: ONE BOLUS OF 5ML
     Route: 040
     Dates: start: 20190919
  3. NAROPIN [Suspect]
     Active Substance: ROPIVACAINE HYDROCHLORIDE
     Dosage: ONE BOLUS OF 5ML
     Route: 040
     Dates: start: 20190919
  4. NAROPIN [Suspect]
     Active Substance: ROPIVACAINE HYDROCHLORIDE
     Indication: LABOUR PAIN
     Route: 040
     Dates: start: 20190919
  5. BUPIVACAINE W/EPINEPHRINE [Suspect]
     Active Substance: BUPIVACAINE\EPINEPHRINE
     Dosage: 3 SEPARATE 10 ML BOLUSES
     Route: 040
     Dates: start: 20190919

REACTIONS (2)
  - Drug ineffective [Unknown]
  - Maternal exposure during delivery [Unknown]

NARRATIVE: CASE EVENT DATE: 20190919
